FAERS Safety Report 7581788-8 (Version None)
Quarter: 2011Q2

REPORT INFORMATION
  Report Type: 
  Country: None (occurrence: None)
  Receive Date: 20110629
  Receipt Date: 20110620
  Transmission Date: 20111010
  Serious: Yes (Other)
  Sender: FDA-Public Use
  Company Number: CH-GILEAD-2011-0040967

PATIENT
  Age: 40 Year
  Sex: Female

DRUGS (6)
  1. VISTIDE [Suspect]
     Indication: HERPES SIMPLEX
     Route: 042
  2. FOSCARNET [Concomitant]
     Indication: HERPES SIMPLEX
     Route: 061
  3. THALIDOMIDE [Concomitant]
     Indication: HERPES SIMPLEX
  4. FAMCICLOVIR [Concomitant]
     Indication: HERPES SIMPLEX
  5. VALACYCLOVIR [Concomitant]
  6. FOSCARNET [Concomitant]
     Route: 042

REACTIONS (1)
  - DRUG RESISTANCE [None]
